FAERS Safety Report 14913550 (Version 1)
Quarter: 2018Q2

REPORT INFORMATION
  Report Type: Spontaneous
  Country: CA (occurrence: CA)
  Receive Date: 20180518
  Receipt Date: 20180518
  Transmission Date: 20180711
  Serious: Yes (Hospitalization)
  Sender: FDA-Public Use
  Company Number: CA-DEPOMED, INC.-CA-2018DEP001064

PATIENT
  Age: 17 Year
  Sex: Female

DRUGS (2)
  1. ADVIL [Concomitant]
     Active Substance: IBUPROFEN
     Indication: PRODUCT USED FOR UNKNOWN INDICATION
     Dosage: UNK
  2. CAMBIA [Suspect]
     Active Substance: DICLOFENAC POTASSIUM
     Indication: MIGRAINE
     Dosage: UNK
     Route: 065
     Dates: start: 20180418

REACTIONS (8)
  - Chest pain [Not Recovered/Not Resolved]
  - Asthenia [Unknown]
  - Dyspnoea [Recovered/Resolved]
  - Hypoaesthesia [Unknown]
  - Tachycardia [Unknown]
  - Hypertension [Unknown]
  - Hyperhidrosis [Unknown]
  - Myalgia [Unknown]

NARRATIVE: CASE EVENT DATE: 20180418
